FAERS Safety Report 8707144 (Version 2)
Quarter: 2012Q4

REPORT INFORMATION
  Report Type: Report from Study
  Country: US (occurrence: US)
  Receive Date: 20120803
  Receipt Date: 20120829
  Transmission Date: 20130627
  Serious: Yes (Other)
  Sender: FDA-Public Use
  Company Number: US-ABBOTT-12P-163-0960753-00

PATIENT
  Age: 37 None
  Sex: Female
  Weight: 50.85 kg

DRUGS (4)
  1. HUMIRA 40 MG/0.8 ML PEN [Suspect]
     Indication: COLITIS ULCERATIVE
     Route: 058
     Dates: start: 2007, end: 201102
  2. CERVIDIL [Suspect]
     Indication: INDUCED LABOUR
     Dates: start: 20111014, end: 20111014
  3. LOVENOX [Concomitant]
     Indication: THROMBOSIS PROPHYLAXIS
  4. PRENATAL VITAMINS [Concomitant]
     Indication: PREGNANCY

REACTIONS (5)
  - Premature separation of placenta [Not Recovered/Not Resolved]
  - Gestational diabetes [Recovered/Resolved]
  - Hypertension [Unknown]
  - Postpartum depression [Unknown]
  - Off label use [Unknown]
